FAERS Safety Report 18156356 (Version 1)
Quarter: 2020Q3

REPORT INFORMATION
  Report Type: Spontaneous
  Country: US (occurrence: US)
  Receive Date: 20200815
  Receipt Date: 20200815
  Transmission Date: 20201103
  Serious: Yes (Hospitalization)
  Sender: FDA-Public Use
  Company Number: None

PATIENT
  Sex: Male
  Weight: 17.3 kg

DRUGS (14)
  1. ONCASPAR [Suspect]
     Active Substance: PEGASPARGASE
     Dosage: ?          OTHER DOSE:1800 IU;?
     Dates: end: 20200624
  2. GLEEVEC [Suspect]
     Active Substance: IMATINIB MESYLATE
     Indication: DRUG THERAPY
     Dates: end: 20200716
  3. DOXORUBICIN HYDROCHLORIDE. [Suspect]
     Active Substance: DOXORUBICIN HYDROCHLORIDE
     Dates: end: 20200708
  4. ETOSPOSIDE (VP?16) [Suspect]
     Active Substance: ETOPOSIDE
     Dates: end: 20200531
  5. DAUNORUBICIN [Suspect]
     Active Substance: DAUNORUBICIN
     Dates: end: 20200117
  6. PREDNISONE. [Suspect]
     Active Substance: PREDNISONE
     Dates: end: 20200122
  7. CYCLOPHOSPHAMIDE. [Suspect]
     Active Substance: CYCLOPHOSPHAMIDE
     Dates: end: 20200413
  8. MERCAPTOPURINE. [Suspect]
     Active Substance: MERCAPTOPURINE
     Indication: THERAPY INTERRUPTED
     Dates: end: 20200309
  9. DEXAMETHASONE. [Suspect]
     Active Substance: DEXAMETHASONE
     Dates: end: 20200707
  10. LEUCOVORIN CALCIUM. [Suspect]
     Active Substance: LEUCOVORIN CALCIUM
     Dates: end: 20200509
  11. ZINECARD [Suspect]
     Active Substance: DEXRAZOXANE HYDROCHLORIDE
     Dates: end: 20200708
  12. VINCRISTINE SULFATE. [Suspect]
     Active Substance: VINCRISTINE SULFATE
     Dates: end: 20200708
  13. CYTARABINE. [Suspect]
     Active Substance: CYTARABINE
     Dates: end: 20200528
  14. METHOTREXATE. [Suspect]
     Active Substance: METHOTREXATE
     Dates: end: 20200617

REACTIONS (22)
  - Pyrexia [None]
  - Atelectasis [None]
  - Ascites [None]
  - Toxicity to various agents [None]
  - Hypophagia [None]
  - Tachycardia [None]
  - Mucosal inflammation [None]
  - Abdominal distension [None]
  - Neutropenia [None]
  - Frequent bowel movements [None]
  - Oral pain [None]
  - Oxygen saturation decreased [None]
  - Sinus tachycardia [None]
  - Lung consolidation [None]
  - Nausea [None]
  - Capillary leak syndrome [None]
  - Hypertension [None]
  - Blood albumin increased [None]
  - Glutamate dehydrogenase increased [None]
  - Clostridium test positive [None]
  - Pain [None]
  - Pleural effusion [None]

NARRATIVE: CASE EVENT DATE: 20200717
